FAERS Safety Report 5199894-4 (Version None)
Quarter: 2007Q1

REPORT INFORMATION
  Report Type: 
  Country: None (occurrence: None)
  Receive Date: 20070102
  Receipt Date: 20070102
  Transmission Date: 20070707
  Serious: Yes (Death, Hospitalization)
  Sender: FDA-Public Use
  Company Number: None

PATIENT
  Age: 54 Year
  Sex: Male
  Weight: 125 kg

DRUGS (12)
  1. PROTAMINE SULFATE [Suspect]
     Indication: HEPARIN NEUTRALISATION THERAPY
     Dosage: 20MG  ONCE  IV
     Route: 042
     Dates: start: 20061115, end: 20061115
  2. ATORVASTATIN CALCIUM [Concomitant]
  3. CALCITRIOL [Concomitant]
  4. CALCIUM ACETATE [Concomitant]
  5. FELODIPINE [Concomitant]
  6. FUROSEMIDE [Concomitant]
  7. INSULIN NPH HUMAN  / NOVOLIN N [Concomitant]
  8. LISINOPRIL [Concomitant]
  9. METHADONE HCL [Concomitant]
  10. METOPROLOL SUCCINATE [Concomitant]
  11. RANITIDINE [Concomitant]
  12. SODIUM BICARBONATE [Concomitant]

REACTIONS (2)
  - ANAPHYLACTIC REACTION [None]
  - MULTI-ORGAN FAILURE [None]
